FAERS Safety Report 8779498 (Version 1)
Quarter: 2012Q4

REPORT INFORMATION
  Report Type: Report from Study
  Country: US (occurrence: US)
  Receive Date: 20120912
  Receipt Date: 20120912
  Transmission Date: 20130627
  Serious: Yes (Hospitalization)
  Sender: FDA-Public Use
  Company Number: US-ROCHE-1109921

PATIENT
  Age: 69 Year
  Sex: Female
  Weight: 87.62 kg

DRUGS (12)
  1. HERCEPTIN [Suspect]
     Indication: BREAST CANCER
     Dosage: Date of last dose prior to SAE : 08/Aug/2012
     Route: 042
     Dates: start: 20090513
  2. LANTUS [Concomitant]
     Route: 065
  3. OMEPRAZOLE [Concomitant]
     Route: 065
  4. ATORVASTAN [Concomitant]
     Route: 065
  5. JANUVIA [Concomitant]
     Route: 065
  6. IRON [Concomitant]
  7. ACTOS [Concomitant]
     Route: 065
  8. POTASSIUM [Concomitant]
     Route: 065
  9. PAROXETINE [Concomitant]
     Route: 065
  10. ASPIRIN [Concomitant]
     Route: 065
  11. FUROSEMIDE [Concomitant]
     Route: 065
  12. PERTUZUMAB [Suspect]
     Indication: BREAST CANCER
     Route: 065

REACTIONS (2)
  - Coronary artery disease [Recovered/Resolved with Sequelae]
  - Aortic stenosis [Recovered/Resolved with Sequelae]
